FAERS Safety Report 8995270 (Version 1)
Quarter: 2012Q4

REPORT INFORMATION
  Report Type: Spontaneous
  Country: US (occurrence: None)
  Receive Date: 20121221
  Receipt Date: 20121221
  Transmission Date: 20130627
  Serious: Yes (Hospitalization)
  Sender: FDA-Public Use
  Company Number: DSA_59975_2012

PATIENT
  Age: 64 Year
  Sex: Female

DRUGS (2)
  1. XENAZINE 25 MG (NOT SPECIFIED) [Suspect]
     Indication: HUNTINGTON^S DISEASE
     Route: 048
     Dates: start: 201102
  2. XENAZINE 25 MG (NOT SPECIFIED) [Suspect]
     Indication: HUNTINGTON^S DISEASE
     Route: 048

REACTIONS (7)
  - Tremor [None]
  - Fall [None]
  - Contusion [None]
  - Periorbital contusion [None]
  - Drug dose omission [None]
  - Urinary tract infection [None]
  - Medication error [None]
